FAERS Safety Report 7382052-2 (Version None)
Quarter: 2011Q1

REPORT INFORMATION
  Report Type: 
  Country: None (occurrence: None)
  Receive Date: 20110329
  Receipt Date: 20110325
  Transmission Date: 20110831
  Serious: Yes (Hospitalization)
  Sender: FDA-Public Use
  Company Number: JP-ABBOTT-11P-087-0701019-00

PATIENT
  Sex: Female
  Weight: 52 kg

DRUGS (11)
  1. RILMAZAFONE HYDROCHLORIDE HYDRATE [Concomitant]
     Indication: PRODUCT USED FOR UNKNOWN INDICATION
  2. METHOTREXATE [Suspect]
     Indication: RHEUMATOID ARTHRITIS
     Dates: end: 20101214
  3. HUMIRA [Suspect]
     Indication: RHEUMATOID ARTHRITIS
     Route: 058
     Dates: start: 20100910, end: 20101207
  4. DICLOFENAC SODIUM [Concomitant]
     Indication: RHEUMATOID ARTHRITIS
     Route: 048
  5. PYRIDOXAL PHOSPHATE HYDRATE [Concomitant]
     Indication: PRODUCT USED FOR UNKNOWN INDICATION
  6. CALCITRIOL [Concomitant]
     Indication: OSTEOPOROSIS
  7. PREDNISOLONE [Concomitant]
     Indication: PRODUCT USED FOR UNKNOWN INDICATION
     Dosage: DAILY DOSE: 4MG
     Route: 048
  8. ISONIAZID [Concomitant]
     Indication: PRODUCT USED FOR UNKNOWN INDICATION
  9. METHOTREXATE [Suspect]
     Dates: start: 20110109
  10. ROXATIDINE ACETATE HCL [Concomitant]
     Indication: GASTRITIS
  11. SODIUM GUALENATE HYDRATE/L-GLUTAMINE [Concomitant]
     Indication: GASTRITIS

REACTIONS (2)
  - OXYGEN SATURATION DECREASED [None]
  - ORGANISING PNEUMONIA [None]
